FAERS Safety Report 7799425-6 (Version None)
Quarter: 2011Q4

REPORT INFORMATION
  Report Type: 
  Country: None (occurrence: None)
  Receive Date: 20111006
  Receipt Date: 20111004
  Transmission Date: 20120403
  Serious: Yes (Other)
  Sender: FDA-Public Use
  Company Number: BR-ABBOTT-10P-020-0624251-00

PATIENT
  Sex: Female
  Weight: 70 kg

DRUGS (13)
  1. HUMIRA [Suspect]
     Route: 058
  2. MELOXICAM [Concomitant]
     Indication: RHEUMATOID ARTHRITIS
     Route: 048
     Dates: start: 20060101
  3. HUMIRA [Suspect]
     Indication: RHEUMATOID ARTHRITIS
     Dosage: INDUCTION DOSE
     Route: 058
     Dates: start: 20070101
  4. CORTICOID [Concomitant]
     Indication: PAIN
     Route: 048
     Dates: start: 20060101
  5. CORTICOID [Concomitant]
     Route: 048
  6. OMEPRAZOLE [Concomitant]
     Indication: GASTRIC DISORDER
     Route: 048
  7. ACETAMINOPHEN W/ CODEINE [Concomitant]
     Indication: PAIN
     Route: 048
     Dates: start: 20060101
  8. HUMIRA [Suspect]
     Route: 058
  9. METHOTREXATE [Concomitant]
     Indication: RHEUMATOID ARTHRITIS
     Route: 048
     Dates: start: 20060101
  10. ACETAMINOPHEN W/ CODEINE [Concomitant]
  11. CHLOROQUINE [Concomitant]
     Indication: RHEUMATOID ARTHRITIS
     Route: 048
     Dates: start: 20060101
  12. PREDNISOLONE [Concomitant]
     Indication: RHEUMATOID ARTHRITIS
     Route: 048
     Dates: start: 20050101
  13. HUMIRA [Suspect]
     Dosage: INDUCTION DOSE
     Route: 058

REACTIONS (14)
  - INSOMNIA [None]
  - INTERVERTEBRAL DISC PROTRUSION [None]
  - DEVICE FAILURE [None]
  - JOINT ARTHROPLASTY [None]
  - DIZZINESS [None]
  - PAIN [None]
  - MEDICAL DEVICE COMPLICATION [None]
  - BLOOD CHOLESTEROL INCREASED [None]
  - ANAEMIA [None]
  - SCIATICA [None]
  - MALAISE [None]
  - ARTHRALGIA [None]
  - SPINAL DECOMPRESSION [None]
  - FATIGUE [None]
